FAERS Safety Report 10389392 (Version 1)
Quarter: 2014Q3

REPORT INFORMATION
  Report Type: Spontaneous
  Country: US (occurrence: US)
  Receive Date: 20140818
  Receipt Date: 20140818
  Transmission Date: 20150326
  Serious: Yes (Other)
  Sender: FDA-Public Use
  Company Number: US-BIOGENIDEC-2014BI080796

PATIENT
  Sex: Female

DRUGS (4)
  1. AVONEX [Suspect]
     Active Substance: INTERFERON BETA-1A
     Indication: PRODUCT USED FOR UNKNOWN INDICATION
     Route: 030
  2. XANAX [Concomitant]
     Active Substance: ALPRAZOLAM
     Indication: ANXIETY
  3. OXYCODONE [Concomitant]
     Active Substance: OXYCODONE
     Indication: PAIN
  4. COPAXONE [Concomitant]
     Active Substance: GLATIRAMER ACETATE

REACTIONS (15)
  - Urinary tract infection [Unknown]
  - Nausea [Unknown]
  - Convulsion [Unknown]
  - Loss of consciousness [Unknown]
  - Anxiety [Unknown]
  - Pain [Unknown]
  - Vomiting [Unknown]
  - Road traffic accident [Recovered/Resolved]
  - Hyperhidrosis [Unknown]
  - Decreased appetite [Unknown]
  - Nasopharyngitis [Unknown]
  - Stress [Unknown]
  - Cough [Unknown]
  - Influenza like illness [Unknown]
  - Liver function test abnormal [Unknown]
